FAERS Safety Report 17565992 (Version 1)
Quarter: 2020Q1

REPORT INFORMATION
  Report Type: Spontaneous
  Country: US (occurrence: US)
  Receive Date: 20200320
  Receipt Date: 20200320
  Transmission Date: 20200409
  Serious: No
  Sender: FDA-Public Use
  Company Number: US-AJANTA PHARMA USA INC.-2081819

PATIENT
  Age: 64 Year
  Sex: Male
  Weight: 77.27 kg

DRUGS (1)
  1. SILODOSIN (ANDA 211060) [Suspect]
     Active Substance: SILODOSIN
     Indication: BENIGN PROSTATIC HYPERPLASIA
     Route: 048
     Dates: start: 20200113

REACTIONS (1)
  - Retrograde ejaculation [Unknown]

NARRATIVE: CASE EVENT DATE: 20200115
